FAERS Safety Report 22078253 (Version 1)
Quarter: 2023Q1

REPORT INFORMATION
  Report Type: Spontaneous
  Country: US (occurrence: None)
  Receive Date: 20230308
  Receipt Date: 20230308
  Transmission Date: 20230417
  Serious: Yes (Other)
  Sender: FDA-Public Use
  Company Number: None

PATIENT
  Age: 70 Year
  Sex: Female
  Weight: 81 kg

DRUGS (1)
  1. SYSTANE COMPLETE PF [Suspect]
     Active Substance: PROPYLENE GLYCOL
     Indication: Corneal dystrophy
     Dosage: OTHER QUANTITY : 1 DROP(S);?FREQUENCY : TWICE A DAY;?
     Route: 047
     Dates: start: 20230124, end: 20230304

REACTIONS (14)
  - Dizziness [None]
  - Hypotension [None]
  - Hyperhidrosis [None]
  - Vision blurred [None]
  - Diplopia [None]
  - Metamorphopsia [None]
  - Nausea [None]
  - Vertigo [None]
  - Dysstasia [None]
  - Gait disturbance [None]
  - Fear of falling [None]
  - Feeling abnormal [None]
  - Balance disorder [None]
  - Photophobia [None]

NARRATIVE: CASE EVENT DATE: 20230301
